FAERS Safety Report 6208291-1 (Version None)
Quarter: 2009Q2

REPORT INFORMATION
  Report Type: 
  Country: None (occurrence: None)
  Receive Date: 20090529
  Receipt Date: 20090519
  Transmission Date: 20091009
  Serious: Yes (Life-Threatening, Hospitalization)
  Sender: FDA-Public Use
  Company Number: US-PFIZER INC-2005121783

PATIENT
  Sex: Male
  Weight: 68.04 kg

DRUGS (14)
  1. MARAVIROC [Suspect]
     Indication: HIV INFECTION
     Dosage: UNK
     Route: 048
     Dates: start: 20050322, end: 20051024
  2. NORVIR [Concomitant]
     Route: 048
     Dates: start: 20050322
  3. COMBIVIR [Concomitant]
     Route: 048
     Dates: start: 20050322
  4. FOSAMPRENAVIR [Concomitant]
     Route: 048
     Dates: start: 20050322
  5. OPIUM TINCTURE [Concomitant]
     Indication: DIARRHOEA
     Route: 065
     Dates: start: 20050113
  6. DIFLUCAN [Concomitant]
     Indication: CANDIDIASIS
     Route: 048
  7. LORAZEPAM [Concomitant]
     Indication: ANXIETY
     Route: 048
     Dates: start: 20020115
  8. ANDROGEL [Concomitant]
     Indication: HYPOGONADISM
     Route: 062
     Dates: start: 20020127
  9. SYNTHROID [Concomitant]
     Indication: HYPOTHYROIDISM
     Route: 048
     Dates: start: 19981101
  10. OXANDRIN [Concomitant]
     Indication: WEIGHT DECREASED
     Route: 048
     Dates: start: 20040215
  11. MEPRON [Concomitant]
     Indication: PROPHYLAXIS
     Route: 048
     Dates: start: 20050110
  12. AMITRIPTLINE HYDROCHLORIDE TAB [Concomitant]
     Indication: DEPRESSION
     Route: 048
     Dates: start: 20050110
  13. AMITRIPTLINE HYDROCHLORIDE TAB [Concomitant]
     Indication: NEUROPATHY PERIPHERAL
  14. VIREAD [Concomitant]
     Route: 048
     Dates: start: 20050322

REACTIONS (1)
  - MYOCARDIAL INFARCTION [None]
